FAERS Safety Report 11647472 (Version 1)
Quarter: 2015Q4

REPORT INFORMATION
  Report Type: Spontaneous
  Country: US (occurrence: None)
  Receive Date: 20151019
  Receipt Date: 20151019
  Transmission Date: 20160304
  Serious: No
  Sender: FDA-Public Use
  Company Number: None

PATIENT
  Age: 53 Year

DRUGS (7)
  1. MULTI VIT [Concomitant]
  2. FISH OIL [Concomitant]
     Active Substance: FISH OIL
  3. OMEGA 3-6-9 [Concomitant]
     Active Substance: FISH OIL
  4. GLATOPA [Suspect]
     Active Substance: GLATIRAMER ACETATE
     Indication: MULTIPLE SCLEROSIS
     Route: 058
     Dates: start: 20150521, end: 201510
  5. CITALOPRAM [Concomitant]
     Active Substance: CITALOPRAM HYDROBROMIDE
  6. AMANTADINE [Concomitant]
     Active Substance: AMANTADINE
  7. GABAPENTIN. [Concomitant]
     Active Substance: GABAPENTIN

REACTIONS (1)
  - Breast cancer recurrent [None]

NARRATIVE: CASE EVENT DATE: 201510
